FAERS Safety Report 8152331-X (Version None)
Quarter: 2012Q1

REPORT INFORMATION
  Report Type: 
  Country: None (occurrence: None)
  Receive Date: 20120214
  Receipt Date: 20120202
  Transmission Date: 20120608
  Serious: Yes (Other)
  Sender: FDA-Public Use
  Company Number: WAES 1202USA01116

PATIENT
  Age: 79 Year
  Sex: Female

DRUGS (15)
  1. NORVASC [Concomitant]
  2. MAGNESIUM [Concomitant]
  3. INSULIN [Concomitant]
  4. IRBESARTAN [Concomitant]
  5. PLACEBO [Suspect]
     Indication: ACUTE CORONARY SYNDROME
     Dosage: PO
     Route: 048
     Dates: start: 20061019, end: 20120125
  6. MOXONIDINE [Concomitant]
  7. ZOLPIDEM TARTRATE [Concomitant]
  8. PLACEBO [Suspect]
     Dosage: PO
     Route: 048
     Dates: start: 20061019, end: 20120125
  9. ASPIRIN [Concomitant]
  10. TORSEMIDE [Concomitant]
  11. VYTORIN [Suspect]
     Indication: ACUTE CORONARY SYNDROME
     Dosage: 10-40 MG/DAILY PO
     Route: 048
     Dates: start: 20061019, end: 20120125
  12. HYDROCHLOROTHIAZIDE [Concomitant]
  13. METFORMIN HCL [Concomitant]
  14. NITROGLYCERIN [Concomitant]
  15. PAROXETINE [Concomitant]

REACTIONS (1)
  - LUNG NEOPLASM MALIGNANT [None]
